FAERS Safety Report 26093767 (Version 1)
Quarter: 2025Q4

REPORT INFORMATION
  Report Type: Report from Study
  Country: US (occurrence: US)
  Receive Date: 20251126
  Receipt Date: 20251126
  Transmission Date: 20260118
  Serious: Yes (Hospitalization, Other)
  Sender: TG THERAPEUTICS
  Company Number: US-TG THERAPEUTICS INC.-TGT006591

PATIENT

DRUGS (2)
  1. UBLITUXIMAB [Suspect]
     Active Substance: UBLITUXIMAB
     Indication: Relapsing multiple sclerosis
     Dosage: 150 MILLIGRAM
     Route: 042
     Dates: start: 20241108, end: 20241108
  2. UBLITUXIMAB [Suspect]
     Active Substance: UBLITUXIMAB
     Dosage: 450 MILLIGRAM
     Route: 042
     Dates: start: 20250508, end: 20250508

REACTIONS (5)
  - Loss of control of legs [Unknown]
  - Fall [Unknown]
  - Dysphemia [Unknown]
  - Hypoacusis [Unknown]
  - Memory impairment [Unknown]
